FAERS Safety Report 5767021-8 (Version None)
Quarter: 2008Q2

REPORT INFORMATION
  Report Type: 
  Country: None (occurrence: None)
  Receive Date: 20080612
  Receipt Date: 20080530
  Transmission Date: 20081010
  Serious: Yes (Other)
  Sender: FDA-Public Use
  Company Number: US-JNJFOC-20080600582

PATIENT
  Sex: Female

DRUGS (3)
  1. TRINESSA [Suspect]
     Indication: DRUG USE FOR UNKNOWN INDICATION
  2. LEXAPRO [Suspect]
     Route: 048
  3. LEXAPRO [Suspect]
     Indication: DEPRESSION
     Route: 048

REACTIONS (6)
  - DIZZINESS [None]
  - HEADACHE [None]
  - INTENTIONAL SELF-INJURY [None]
  - METRORRHAGIA [None]
  - NAUSEA [None]
  - RASH [None]
